FAERS Safety Report 18375432 (Version 1)
Quarter: 2020Q4

REPORT INFORMATION
  Report Type: Report from Study
  Country: None (occurrence: US)
  Receive Date: 20201012
  Receipt Date: 20201012
  Transmission Date: 20210114
  Serious: Yes (Other)
  Sender: FDA-Public Use
  Company Number: US-ABBVIE-19K-163-2870343-00

PATIENT
  Sex: Female
  Weight: 67.19 kg

DRUGS (3)
  1. LISINOPRIL. [Concomitant]
     Active Substance: LISINOPRIL
     Indication: PRODUCT USED FOR UNKNOWN INDICATION
  2. HUMIRA [Suspect]
     Active Substance: ADALIMUMAB
     Indication: RHEUMATOID ARTHRITIS
     Route: 058
  3. HUMIRA [Suspect]
     Active Substance: ADALIMUMAB
     Route: 058

REACTIONS (8)
  - Dental care [Unknown]
  - Dyschromatopsia [Unknown]
  - Cataract [Unknown]
  - Pain in extremity [Not Recovered/Not Resolved]
  - Visual impairment [Unknown]
  - Drug ineffective [Not Recovered/Not Resolved]
  - Macular hole [Unknown]
  - Arthralgia [Not Recovered/Not Resolved]
